FAERS Safety Report 22222372 (Version 1)
Quarter: 2023Q2

REPORT INFORMATION
  Report Type: Spontaneous
  Country: BE (occurrence: BE)
  Receive Date: 20230418
  Receipt Date: 20230418
  Transmission Date: 20230722
  Serious: Yes (Other)
  Sender: FDA-Public Use
  Company Number: None

PATIENT
  Age: 39 Year
  Sex: Female
  Weight: 92 kg

DRUGS (20)
  1. CABLIVI [Suspect]
     Active Substance: CAPLACIZUMAB-YHDP
     Indication: Thrombotic thrombocytopenic purpura
     Dosage: 1 DF, QD
     Route: 058
     Dates: start: 20230210
  2. CABLIVI [Suspect]
     Active Substance: CAPLACIZUMAB-YHDP
     Indication: Thrombotic thrombocytopenic purpura
     Dosage: 1 DF, QD
     Route: 058
     Dates: start: 20230210
  3. CABLIVI [Suspect]
     Active Substance: CAPLACIZUMAB-YHDP
     Indication: Thrombotic thrombocytopenic purpura
     Dosage: 1 DF, QD
     Route: 058
     Dates: start: 20230210
  4. CABLIVI [Suspect]
     Active Substance: CAPLACIZUMAB-YHDP
     Indication: Thrombotic thrombocytopenic purpura
     Dosage: 1 DF, QD
     Route: 058
     Dates: start: 20230210
  5. TOVIAZ [Concomitant]
     Active Substance: FESOTERODINE FUMARATE
     Dosage: 1 DF, QD
  6. LUEVA [Concomitant]
     Dosage: 1 DF, QD
  7. METFORMIN [Concomitant]
     Active Substance: METFORMIN HYDROCHLORIDE
     Dosage: 1 DF, QD
  8. AVONEX [Concomitant]
     Active Substance: INTERFERON BETA-1A
     Indication: Thrombotic thrombocytopenic purpura
     Dosage: 1 DF, QW
     Route: 030
     Dates: start: 20230320, end: 20230320
  9. FOLIC ACID [Concomitant]
     Active Substance: FOLIC ACID
     Dosage: 1 DF, QD
  10. MEDROL [Concomitant]
     Active Substance: METHYLPREDNISOLONE
     Dosage: 32 MG, QD
     Dates: start: 20230307
  11. MEDROL [Concomitant]
     Active Substance: METHYLPREDNISOLONE
     Dosage: 24 MG, QD
     Dates: start: 20230315
  12. MEDROL [Concomitant]
     Active Substance: METHYLPREDNISOLONE
     Dosage: 16 MG, QD
     Dates: start: 20230321
  13. MEDROL [Concomitant]
     Active Substance: METHYLPREDNISOLONE
     Dosage: 8 MG, QD
     Dates: start: 20230328
  14. LYRICA [Concomitant]
     Active Substance: PREGABALIN
     Dosage: 1 DF, BID
  15. BEFACT [CYANOCOBALAMIN;PYRIDOXINE;THIAMINE] [Concomitant]
     Dosage: 1 DF, QD
  16. RITUXIMAB [Concomitant]
     Active Substance: RITUXIMAB
     Dosage: 1400 MG
     Dates: start: 20230211
  17. RITUXIMAB [Concomitant]
     Active Substance: RITUXIMAB
     Dosage: 1400 MG
     Dates: start: 20230221
  18. RITUXIMAB [Concomitant]
     Active Substance: RITUXIMAB
     Dosage: 1400 MG
     Dates: start: 20230228
  19. RITUXIMAB [Concomitant]
     Active Substance: RITUXIMAB
     Dosage: 1400 MG
     Dates: start: 20230307
  20. AMITRIPTYLINE HYDROCHLORIDE [Concomitant]
     Active Substance: AMITRIPTYLINE HYDROCHLORIDE
     Dosage: 1 DF, TID

REACTIONS (5)
  - Injection site pain [Recovering/Resolving]
  - Injection site pruritus [Recovering/Resolving]
  - Injection site plaque [Recovering/Resolving]
  - Oedema [Recovering/Resolving]
  - Hypersensitivity [Recovering/Resolving]

NARRATIVE: CASE EVENT DATE: 20230311
